FAERS Safety Report 21360012 (Version 4)
Quarter: 2023Q1

REPORT INFORMATION
  Report Type: Spontaneous
  Country: US (occurrence: US)
  Receive Date: 20220921
  Receipt Date: 20230105
  Transmission Date: 20230418
  Serious: Yes (Hospitalization, Other)
  Sender: FDA-Public Use
  Company Number: US-PFIZER INC-PV202200045117

PATIENT
  Age: 30 Year
  Sex: Male

DRUGS (1)
  1. XELJANZ [Suspect]
     Active Substance: TOFACITINIB CITRATE
     Indication: Colitis ulcerative
     Dosage: 10 MG, 2X/DAY
     Route: 048
     Dates: start: 20220727

REACTIONS (7)
  - Herpes virus infection [Unknown]
  - Haematochezia [Unknown]
  - Product dose omission in error [Unknown]
  - Intentional dose omission [Unknown]
  - Illness [Unknown]
  - Frequent bowel movements [Unknown]
  - Sleep disorder [Unknown]

NARRATIVE: CASE EVENT DATE: 20221102
